FAERS Safety Report 4392296-X (Version None)
Quarter: 2004Q3

REPORT INFORMATION
  Report Type: 
  Country: None (occurrence: None)
  Receive Date: 20040708
  Receipt Date: 20040624
  Transmission Date: 20050211
  Serious: Yes (Other)
  Sender: FDA-Public Use
  Company Number: PHBS2004ES08457

PATIENT
  Age: 27 Year
  Sex: Male

DRUGS (4)
  1. CYCLOSPORINE [Suspect]
     Indication: STEM CELL TRANSPLANT
     Route: 065
  2. CASPOFUNGIN [Concomitant]
     Indication: BRONCHOPULMONARY ASPERGILLOSIS
  3. AMPHOTERICIN B [Concomitant]
  4. AMPHOTERICIN B [Concomitant]

REACTIONS (6)
  - ASPARTATE AMINOTRANSFERASE INCREASED [None]
  - BLOOD BILIRUBIN INCREASED [None]
  - BLOOD CREATININE INCREASED [None]
  - BRONCHOPULMONARY ASPERGILLOSIS [None]
  - RENAL IMPAIRMENT [None]
  - VENOOCCLUSIVE DISEASE [None]
